FAERS Safety Report 6875302-X (Version None)
Quarter: 2010Q3

REPORT INFORMATION
  Report Type: 
  Country: None (occurrence: None)
  Receive Date: 20100727
  Receipt Date: 20070702
  Transmission Date: 20110219
  Serious: Yes (Hospitalization)
  Sender: FDA-Public Use
  Company Number: US-PFIZER INC-2006111050

PATIENT
  Sex: Male
  Weight: 95.3 kg

DRUGS (15)
  1. CELEBREX [Suspect]
     Indication: PAIN
     Route: 048
     Dates: start: 19991101, end: 20040420
  2. VIOXX [Suspect]
     Indication: PAIN
     Route: 048
     Dates: start: 19991101, end: 20040930
  3. BEXTRA [Concomitant]
     Dates: start: 20020730, end: 20020830
  4. CARISOPRODOL [Concomitant]
     Dates: start: 20050318
  5. CHLORZOXAZONE [Concomitant]
     Dates: start: 20010718, end: 20020908
  6. CYCLOBENZAPRINE [Concomitant]
     Dates: start: 20020802, end: 20030305
  7. ETODOLAC [Concomitant]
     Dates: start: 20010925, end: 20011005
  8. NAPROXEN [Concomitant]
     Dates: start: 20020802, end: 20030305
  9. DILTIAZEM [Concomitant]
  10. ENALAPRIL MALEATE [Concomitant]
  11. TRAMADOL HYDROCHLORIDE [Concomitant]
     Dates: start: 20020712, end: 20020727
  12. ASPIRIN [Concomitant]
  13. HYDROCHLOROTHIAZIDE [Concomitant]
  14. WARFARIN [Concomitant]
  15. HYDROCHLOROTHIAZIDE [Concomitant]

REACTIONS (2)
  - DEEP VEIN THROMBOSIS [None]
  - MYOCARDIAL INFARCTION [None]
